FAERS Safety Report 21763303 (Version 1)
Quarter: 2022Q4

REPORT INFORMATION
  Report Type: Spontaneous
  Country: JP (occurrence: JP)
  Receive Date: 20221221
  Receipt Date: 20221221
  Transmission Date: 20230113
  Serious: Yes (Hospitalization, Other)
  Sender: FDA-Public Use
  Company Number: JP-BRISTOL-MYERS SQUIBB COMPANY-2022-156204

PATIENT
  Age: 83 Year
  Sex: Male
  Weight: 42.8 kg

DRUGS (13)
  1. ABRAXANE [Suspect]
     Active Substance: PACLITAXEL
     Indication: Pancreatic carcinoma recurrent
     Dosage: EVERY 3-4 WEEKS, CYCLE 4?DAILY DOSE: 120 MILLIGRAM(S)
     Route: 042
     Dates: start: 20220818, end: 20221020
  2. GEMCITABINE [Concomitant]
     Active Substance: GEMCITABINE
     Indication: Pancreatic carcinoma recurrent
     Dosage: NI, CYCLE 4
     Dates: start: 20220818
  3. MAGNESIUM OXIDE [Concomitant]
     Active Substance: MAGNESIUM OXIDE
     Indication: Constipation
     Route: 048
     Dates: start: 20210218
  4. MINODRONIC ACID [Concomitant]
     Active Substance: MINODRONIC ACID
     Indication: Osteoporosis
     Route: 048
     Dates: start: 20220818
  5. LOXOPROFEN [Concomitant]
     Active Substance: LOXOPROFEN
     Indication: Back pain
     Dosage: AS NECESSARY
     Route: 048
     Dates: start: 20220428, end: 20221019
  6. REBAMIPIDE [Concomitant]
     Active Substance: REBAMIPIDE
     Indication: Back pain
     Dosage: AS NECESSARY
     Route: 048
     Dates: start: 20220428, end: 20221019
  7. KETOPROFEN [Concomitant]
     Active Substance: KETOPROFEN
     Indication: Back pain
     Route: 061
     Dates: start: 20220929, end: 20221019
  8. ZICTHORU [Concomitant]
     Indication: Cancer pain
     Route: 062
     Dates: start: 20221020
  9. VONOPRAZAN FUMARATE [Concomitant]
     Active Substance: VONOPRAZAN FUMARATE
     Indication: Gastrooesophageal reflux disease
     Route: 048
     Dates: start: 20201215
  10. MIYA-BM [Concomitant]
     Active Substance: CLOSTRIDIUM BUTYRICUM SPORES STRAIN M-55
     Indication: Enterocolitis
     Dosage: 1 TABLET/DOSE
     Route: 048
     Dates: start: 20201215
  11. MOSAPRIDE CITRATE DIHYDRATE [Concomitant]
     Active Substance: MOSAPRIDE CITRATE DIHYDRATE
     Indication: Gastrointestinal procedural complication
     Route: 048
     Dates: start: 20201215
  12. URSODIOL [Concomitant]
     Active Substance: URSODIOL
     Indication: Cholestasis
     Route: 048
     Dates: start: 20201215
  13. PANCRELIPASE [Concomitant]
     Active Substance: PANCRELIPASE
     Indication: Postoperative care
     Route: 048
     Dates: start: 20201215

REACTIONS (3)
  - Fulminant type 1 diabetes mellitus [Recovered/Resolved]
  - Schizophrenia [Unknown]
  - Iron deficiency anaemia [Unknown]

NARRATIVE: CASE EVENT DATE: 20221110
